FAERS Safety Report 6603230-3 (Version None)
Quarter: 2010Q1

REPORT INFORMATION
  Report Type: 
  Country: None (occurrence: None)
  Receive Date: 20100226
  Receipt Date: 20100219
  Transmission Date: 20100710
  Serious: Yes (Hospitalization, Other)
  Sender: FDA-Public Use
  Company Number: US-ROXANE LABORATORIES, INC.-2010-DE-01208GD

PATIENT
  Age: 31 Year
  Sex: Female

DRUGS (4)
  1. NEVIRAPINE [Suspect]
     Indication: HIV INFECTION
  2. METHADONE HCL [Suspect]
     Indication: DRUG DEPENDENCE
     Dosage: 80 MG
  3. METHADONE HCL [Suspect]
     Dosage: 85 MG
  4. ANTI-HIV DRUGS [Concomitant]
     Indication: HIV INFECTION

REACTIONS (5)
  - DRUG ABUSER [None]
  - DRUG INTERACTION [None]
  - DRUG LEVEL BELOW THERAPEUTIC [None]
  - DRUG WITHDRAWAL SYNDROME [None]
  - PNEUMONIA [None]
